FAERS Safety Report 8181193-X (Version None)
Quarter: 2012Q1

REPORT INFORMATION
  Report Type: 
  Country: None (occurrence: None)
  Receive Date: 20120302
  Receipt Date: 20120224
  Transmission Date: 20120608
  Serious: Yes (Hospitalization)
  Sender: FDA-Public Use
  Company Number: US-GLAXOSMITHKLINE-B0736596A

PATIENT
  Age: 46 Year
  Sex: Female

DRUGS (8)
  1. LAPATINIB [Suspect]
     Indication: BREAST CANCER
     Dosage: 1000MG PER DAY
     Route: 048
     Dates: start: 20100412
  2. NORCO [Concomitant]
     Indication: ABDOMINAL PAIN
     Dates: start: 20100325
  3. AMBIEN [Concomitant]
     Indication: ANXIETY
     Dates: start: 20080628
  4. MORPHINE SULFATE [Concomitant]
     Indication: ABDOMINAL PAIN
     Dosage: 60MG PER DAY
     Dates: start: 20100325
  5. PEPCID [Concomitant]
     Indication: DYSPEPSIA
     Dosage: 20MG PER DAY
     Dates: start: 20100428
  6. CAPECITABINE [Suspect]
     Indication: BREAST CANCER
     Dosage: 1150MG TWICE PER DAY
     Route: 048
     Dates: start: 20100412
  7. XANAX [Concomitant]
     Indication: ANXIETY
     Dosage: .25MG PER DAY
     Dates: start: 20080408
  8. IMODIUM [Concomitant]
     Indication: DIARRHOEA
     Dates: start: 20100622

REACTIONS (4)
  - THROMBOSIS [None]
  - BREAST CANCER METASTATIC [None]
  - PORTAL VEIN THROMBOSIS [None]
  - NEOPLASM PROGRESSION [None]
